FAERS Safety Report 16222823 (Version 2)
Quarter: 2019Q2

REPORT INFORMATION
  Report Type: Spontaneous
  Country: JP (occurrence: JP)
  Receive Date: 20190422
  Receipt Date: 20190501
  Transmission Date: 20190711
  Serious: Yes (Hospitalization)
  Sender: FDA-Public Use
  Company Number: JP-ELI_LILLY_AND_COMPANY-JP201904007759

PATIENT
  Sex: Male
  Weight: 73 kg

DRUGS (10)
  1. HANGESHASHINTO [COPTIS SPP. RHIZOME;GLYCYRRHI [Concomitant]
     Indication: PROPHYLAXIS AGAINST DIARRHOEA
     Dosage: 2.5 G, TID
     Route: 048
  2. LOXOPROFEN SODIUM [Suspect]
     Active Substance: LOXOPROFEN SODIUM
     Indication: BACK PAIN
     Dosage: 60 MG, TID
     Route: 048
     Dates: start: 20180307, end: 20190404
  3. AVASTIN [Suspect]
     Active Substance: BEVACIZUMAB
     Indication: RECTAL CANCER RECURRENT
     Dosage: 300 MG
     Route: 042
     Dates: start: 20180606, end: 20190213
  4. IRINOTECAN [Concomitant]
     Active Substance: IRINOTECAN
     Indication: RECTAL CANCER RECURRENT
     Dosage: 240 MG
     Route: 041
     Dates: start: 20190313, end: 20190313
  5. 5 FU [Concomitant]
     Active Substance: FLUOROURACIL
     Indication: RECTAL CANCER RECURRENT
     Dosage: 650 MG
     Route: 040
     Dates: start: 20190313, end: 20190313
  6. LEVOFOLINATE CALCIUM [Concomitant]
     Active Substance: LEVOLEUCOVORIN CALCIUM
     Indication: RECTAL CANCER RECURRENT
     Dosage: 325 MG
     Route: 041
     Dates: start: 20190313, end: 20190313
  7. 5 FU [Concomitant]
     Active Substance: FLUOROURACIL
     Indication: RECTAL CANCER RECURRENT
     Dosage: 4000 MG
     Route: 041
     Dates: start: 20190313, end: 20190315
  8. LANSOPRAZOLE. [Concomitant]
     Active Substance: LANSOPRAZOLE
     Indication: GASTROOESOPHAGEAL REFLUX DISEASE
     Dosage: 15 MG, DAILY
     Route: 048
     Dates: start: 20160719
  9. CYRAMZA [Suspect]
     Active Substance: RAMUCIRUMAB
     Indication: RECTAL CANCER RECURRENT
     Dosage: 500 MG
     Route: 041
     Dates: start: 20190313, end: 20190313
  10. CAMSHIA HD NISSIN [Concomitant]
     Indication: HYPERTENSION

REACTIONS (1)
  - Acute kidney injury [Recovering/Resolving]

NARRATIVE: CASE EVENT DATE: 20190325
